FAERS Safety Report 9036796 (Version 1)
Quarter: 2013Q1

REPORT INFORMATION
  Report Type: Spontaneous
  Country: US (occurrence: None)
  Receive Date: 20130118
  Receipt Date: 20130118
  Transmission Date: 20140127
  Serious: Yes (Other)
  Sender: FDA-Public Use
  Company Number: None

PATIENT
  Age: 55 Year
  Sex: Female
  Weight: 63.05 kg

DRUGS (1)
  1. BEYAZ [Suspect]
     Dosage: 1 DOSE DAILY ORAL
     Route: 048
     Dates: start: 20121001, end: 20130117

REACTIONS (9)
  - Dizziness [None]
  - Weight increased [None]
  - Flatulence [None]
  - Abdominal distension [None]
  - Fatigue [None]
  - Chromaturia [None]
  - Stress [None]
  - Headache [None]
  - Faeces discoloured [None]
